FAERS Safety Report 15506100 (Version 1)
Quarter: 2018Q4

REPORT INFORMATION
  Report Type: Spontaneous
  Country: US (occurrence: US)
  Receive Date: 20181016
  Receipt Date: 20181016
  Transmission Date: 20190205
  Serious: No
  Sender: FDA-Public Use
  Company Number: US-MELINTA THERAPEUTICS, INC.-MTP201806-000036

PATIENT
  Age: 64 Year
  Sex: Female

DRUGS (1)
  1. BAXDELA [Suspect]
     Active Substance: DELAFLOXACIN MEGLUMINE
     Indication: INFECTION
     Dosage: UNKNOWN

REACTIONS (1)
  - Rash [Unknown]
